FAERS Safety Report 7099912-2 (Version None)
Quarter: 2010Q4

REPORT INFORMATION
  Report Type: 
  Country: None (occurrence: None)
  Receive Date: 20101112
  Receipt Date: 20101029
  Transmission Date: 20110411
  Serious: Yes (Other)
  Sender: FDA-Public Use
  Company Number: NL-TEVA-254659ISR

PATIENT
  Sex: Male

DRUGS (3)
  1. HALOPERIDOL [Suspect]
     Indication: SCHIZOPHRENIA
     Route: 048
  2. HALOPERIDOL [Suspect]
     Route: 048
  3. OXAZEPAM [Interacting]
     Route: 048

REACTIONS (3)
  - FEELING ABNORMAL [None]
  - HALLUCINATION, AUDITORY [None]
  - THOUGHT BROADCASTING [None]
